FAERS Safety Report 7997062-1 (Version None)
Quarter: 2011Q4

REPORT INFORMATION
  Report Type: 
  Country: None (occurrence: None)
  Receive Date: 20111216
  Receipt Date: 20111202
  Transmission Date: 20120403
  Serious: Yes (Hospitalization)
  Sender: FDA-Public Use
  Company Number: 1000026185

PATIENT
  Age: 46 Year
  Sex: Female

DRUGS (9)
  1. BRONKYL (ACETYLCYSTEINE) [Concomitant]
  2. SYMBICORT [Concomitant]
  3. ATACAND [Concomitant]
  4. ROFLUMILAST (ROFLUMILAST) (TABLETS) [Suspect]
     Indication: CHRONIC OBSTRUCTIVE PULMONARY DISEASE
     Dosage: 500 MCG (500 MCG, 1 IN 1 D), ORAL
     Route: 048
     Dates: start: 20111028, end: 20111104
  5. SPIRIVA [Concomitant]
  6. FUROSEMIDE [Concomitant]
  7. VENTOLIN [Concomitant]
  8. ASPIRIN [Concomitant]
  9. MYCOSTATIN [Concomitant]

REACTIONS (7)
  - RESTLESSNESS [None]
  - MYOCARDIAL ISCHAEMIA [None]
  - CARDIAC FAILURE [None]
  - MYOCARDIAL INFARCTION [None]
  - TACHYCARDIA [None]
  - GENERAL PHYSICAL HEALTH DETERIORATION [None]
  - DRUG INTERACTION [None]
